FAERS Safety Report 6613280-9 (Version None)
Quarter: 2010Q1

REPORT INFORMATION
  Report Type: 
  Country: None (occurrence: None)
  Receive Date: 20100304
  Receipt Date: 20100224
  Transmission Date: 20100710
  Serious: Yes (Other)
  Sender: FDA-Public Use
  Company Number: IT-BRISTOL-MYERS SQUIBB COMPANY-14990337

PATIENT
  Age: 39 Year
  Sex: Female

DRUGS (4)
  1. BLEOMYCIN SULFATE [Suspect]
     Indication: HODGKIN'S DISEASE
     Dosage: INTERRUPTED ON 26JUN09 AND RESTARTED
     Route: 042
     Dates: start: 20090626, end: 20090626
  2. VELBE [Suspect]
     Indication: HODGKIN'S DISEASE
     Dosage: INTERRUPTED ON 26JUN09 AND RESTARTED
     Route: 042
     Dates: start: 20090626, end: 20090626
  3. DETICENE [Suspect]
     Indication: HODGKIN'S DISEASE
     Dosage: INTERRUPTED ON 26JUN09 AND RESTARTED
     Route: 042
     Dates: start: 20090626, end: 20090626
  4. DOXORUBICIN HCL [Suspect]
     Indication: HODGKIN'S DISEASE
     Dosage: INTERRUPTED ON 26JUN09 AND RESTARTED
     Route: 042
     Dates: start: 20090626, end: 20090626

REACTIONS (3)
  - AGRANULOCYTOSIS [None]
  - HOT FLUSH [None]
  - NEUROTOXICITY [None]
